FAERS Safety Report 7423545-9 (Version None)
Quarter: 2011Q2

REPORT INFORMATION
  Report Type: 
  Country: None (occurrence: None)
  Receive Date: 20110419
  Receipt Date: 20110408
  Transmission Date: 20111010
  Serious: Yes (Other)
  Sender: FDA-Public Use
  Company Number: HR-ROCHE-770578

PATIENT
  Age: 57 Year
  Sex: Male

DRUGS (6)
  1. PROGRAF [Interacting]
     Indication: PROPHYLAXIS AGAINST TRANSPLANT REJECTION
     Route: 042
     Dates: start: 20110222
  2. PRAZINE [Concomitant]
  3. FRAXIPARINE [Concomitant]
     Route: 058
  4. CONTROLOC [Concomitant]
     Route: 048
  5. CELLCEPT [Suspect]
     Indication: PROPHYLAXIS AGAINST TRANSPLANT REJECTION
     Route: 042
     Dates: start: 20110222
  6. DIFLUCAN [Interacting]
     Route: 048
     Dates: start: 20110222

REACTIONS (5)
  - DRUG INTERACTION [None]
  - DELIRIUM [None]
  - DISORIENTATION [None]
  - AGITATION [None]
  - RESTLESSNESS [None]
